FAERS Safety Report 15832697 (Version 1)
Quarter: 2019Q1

REPORT INFORMATION
  Report Type: Spontaneous
  Country: CA (occurrence: CA)
  Receive Date: 20190116
  Receipt Date: 20190116
  Transmission Date: 20190417
  Serious: Yes (Other)
  Sender: FDA-Public Use
  Company Number: CA-BAUSCH-BL-2019-001345

PATIENT
  Age: 70 Year
  Sex: Female

DRUGS (1)
  1. JUBLIA [Suspect]
     Active Substance: EFINACONAZOLE
     Indication: ONYCHOMYCOSIS
     Dosage: FREQUENCY: DAILY
     Route: 061
     Dates: start: 201806, end: 2018

REACTIONS (4)
  - Application site swelling [Recovered/Resolved with Sequelae]
  - Application site pain [Recovered/Resolved with Sequelae]
  - Dermatitis contact [Recovered/Resolved with Sequelae]
  - Application site erythema [Recovered/Resolved with Sequelae]

NARRATIVE: CASE EVENT DATE: 2018
